FAERS Safety Report 10297872 (Version 1)
Quarter: 2014Q3

REPORT INFORMATION
  Report Type: Spontaneous
  Country: PK (occurrence: PK)
  Receive Date: 20140711
  Receipt Date: 20140711
  Transmission Date: 20150326
  Serious: Yes (Hospitalization)
  Sender: FDA-Public Use
  Company Number: PK-PERRIGO-14PK006712

PATIENT
  Age: 5 Month
  Sex: Male

DRUGS (1)
  1. FLUTICASONE PROPIONATE. [Suspect]
     Active Substance: FLUTICASONE PROPIONATE
     Indication: SKIN DISORDER
     Dosage: UNK, BID TO A 2 X 2 CM AREA
     Route: 061

REACTIONS (4)
  - Intracranial pressure increased [Recovered/Resolved]
  - Vomiting projectile [Recovered/Resolved]
  - Fontanelle bulging [Recovered/Resolved]
  - Pyrexia [Recovered/Resolved]
